FAERS Safety Report 24682200 (Version 1)
Quarter: 2024Q4

REPORT INFORMATION
  Report Type: Spontaneous
  Country: GB (occurrence: GB)
  Receive Date: 20241130
  Receipt Date: 20241130
  Transmission Date: 20250115
  Serious: Yes (Other)
  Sender: ABBVIE
  Company Number: None

PATIENT
  Age: 24 Year
  Sex: Female

DRUGS (3)
  1. CITALOPRAM [Suspect]
     Active Substance: CITALOPRAM
     Indication: Affective disorder
     Dosage: 20MG TABLETS TAKE ONE TABLET DAILY FOR MOOD
     Route: 065
     Dates: start: 20241113
  2. KELHALE [Concomitant]
     Indication: Product used for unknown indication
     Dosage: INHALE ONE PUFF SLOW AND STEADY, TWICE DAILY
     Dates: start: 20221111
  3. ALBUTEROL [Concomitant]
     Active Substance: ALBUTEROL
     Indication: Product used for unknown indication
     Dosage: ASTHMA: INHALE TWO PUFFS SLOW AND STEADY, WHEN
     Dates: start: 20221111

REACTIONS (2)
  - Lip swelling [Recovered/Resolved]
  - Product use in unapproved indication [Unknown]

NARRATIVE: CASE EVENT DATE: 20240101
